FAERS Safety Report 12379322 (Version 2)
Quarter: 2016Q3

REPORT INFORMATION
  Report Type: Spontaneous
  Country: US (occurrence: US)
  Receive Date: 20160517
  Receipt Date: 20160901
  Transmission Date: 20161109
  Serious: No
  Sender: FDA-Public Use
  Company Number: US-RELYPSA-RLY2016000263

PATIENT
  Sex: Female

DRUGS (35)
  1. ASPIRIN                            /00002701/ [Concomitant]
     Active Substance: ASPIRIN
  2. RANEXA [Concomitant]
     Active Substance: RANOLAZINE
  3. LISINOPRIL. [Concomitant]
     Active Substance: LISINOPRIL
  4. KETOCONAZOLE. [Concomitant]
     Active Substance: KETOCONAZOLE
  5. FERAHEME [Concomitant]
     Active Substance: FERUMOXYTOL NON-STOICHIOMETRIC MAGNETITE
  6. AZOLE [Concomitant]
     Active Substance: ALBENDAZOLE
  7. ISOSORBIDE MONONITRATE. [Concomitant]
     Active Substance: ISOSORBIDE MONONITRATE
  8. CARVEDILOL. [Concomitant]
     Active Substance: CARVEDILOL
  9. OMEPRAZOLE. [Concomitant]
     Active Substance: OMEPRAZOLE
  10. KIONEX [Concomitant]
     Active Substance: SODIUM POLYSTYRENE SULFONATE
  11. CYCLOBENZAPRINE HCL [Concomitant]
     Active Substance: CYCLOBENZAPRINE HYDROCHLORIDE
  12. LOTRISONE [Concomitant]
     Active Substance: BETAMETHASONE DIPROPIONATE\CLOTRIMAZOLE
  13. ALLOPURINOL. [Concomitant]
     Active Substance: ALLOPURINOL
  14. NITROSTAT [Concomitant]
     Active Substance: NITROGLYCERIN
  15. BUMETANIDE. [Concomitant]
     Active Substance: BUMETANIDE
  16. FENOFIBRATE. [Concomitant]
     Active Substance: FENOFIBRATE
  17. NOVOLIN R [Concomitant]
     Active Substance: INSULIN HUMAN
  18. GABAPENTIN. [Concomitant]
     Active Substance: GABAPENTIN
  19. BUSPIRONE HCL [Concomitant]
     Active Substance: BUSPIRONE HYDROCHLORIDE
  20. CALCITRATE [Concomitant]
     Active Substance: CALCIUM CITRATE
  21. VITAMIN B12 [Concomitant]
     Active Substance: CYANOCOBALAMIN
  22. AMOXICILLIN. [Concomitant]
     Active Substance: AMOXICILLIN
  23. MAGNESIUM OXIDE. [Concomitant]
     Active Substance: MAGNESIUM OXIDE
  24. NORTRIPTYLINE HCL [Concomitant]
     Active Substance: NORTRIPTYLINE HYDROCHLORIDE
  25. ENDOCET [Concomitant]
     Active Substance: ACETAMINOPHEN\OXYCODONE HYDROCHLORIDE
  26. COLCRYS [Concomitant]
     Active Substance: COLCHICINE
  27. FLUOROURACIL. [Concomitant]
     Active Substance: FLUOROURACIL
  28. HYDROXYZINE PAMOATE. [Concomitant]
     Active Substance: HYDROXYZINE PAMOATE
  29. ZOCOR [Concomitant]
     Active Substance: SIMVASTATIN
  30. LEVOTHYROXINE SODIUM. [Concomitant]
     Active Substance: LEVOTHYROXINE SODIUM
  31. CALCIUM CARBONATE. [Concomitant]
     Active Substance: CALCIUM CARBONATE
  32. VITAMIN D3 [Concomitant]
     Active Substance: CHOLECALCIFEROL
  33. VELTASSA [Suspect]
     Active Substance: PATIROMER
     Indication: HYPERKALAEMIA
     Dosage: 8.4 G, QD
     Route: 048
     Dates: start: 20160325
  34. TRIAMCINOLONE ACETONIDE. [Concomitant]
     Active Substance: TRIAMCINOLONE ACETONIDE
  35. HYDROXYZINE HCL [Concomitant]
     Active Substance: HYDROXYZINE HYDROCHLORIDE

REACTIONS (2)
  - Vomiting [Unknown]
  - Blood glucose decreased [Unknown]
